FAERS Safety Report 6017566-0 (Version None)
Quarter: 2008Q4

REPORT INFORMATION
  Report Type: 
  Country: None (occurrence: None)
  Receive Date: 20081219
  Receipt Date: 20081209
  Transmission Date: 20090506
  Serious: Yes (Congenital Anomaly)
  Sender: FDA-Public Use
  Company Number: B0550618A

PATIENT

DRUGS (8)
  1. PAROXETINE HYDROCHLORIDE (FORMULATION UNKNOWN) [Suspect]
     Dosage: TRANSPLACENTARY
  2. ETHANOL [Concomitant]
  3. CANNABIS [Concomitant]
  4. MORPHINE [Concomitant]
  5. OPIPRAMOL [Concomitant]
  6. PROMETHAZINE [Concomitant]
  7. CLOBUTINOL HYDROCHLORIDE [Concomitant]
  8. ACETYLCYSTEINE [Concomitant]

REACTIONS (4)
  - ATRIAL SEPTAL DEFECT [None]
  - FOOT DEFORMITY [None]
  - MATERNAL DRUGS AFFECTING FOETUS [None]
  - PULMONARY ARTERY STENOSIS CONGENITAL [None]
